FAERS Safety Report 13468656 (Version 2)
Quarter: 2017Q2

REPORT INFORMATION
  Report Type: Report from Study
  Country: IT (occurrence: IT)
  Receive Date: 20170421
  Receipt Date: 20170425
  Transmission Date: 20170830
  Serious: Yes (Other)
  Sender: FDA-Public Use
  Company Number: IT-TAKEDA-2017TJP008491

PATIENT
  Sex: Female

DRUGS (7)
  1. BRINTELLIX [Suspect]
     Active Substance: VORTIOXETINE HYDROBROMIDE
     Indication: HYPERTENSION
     Dosage: UNK, QD
     Route: 048
  2. LOBIVON [Suspect]
     Active Substance: NEBIVOLOL HYDROCHLORIDE
     Indication: PRODUCT USED FOR UNKNOWN INDICATION
     Dosage: 5 MG, QD
     Route: 065
     Dates: start: 2013, end: 201704
  3. VITAMIN D3 [Concomitant]
     Active Substance: CHOLECALCIFEROL
     Dosage: 25000 IU, UNK
  4. TAVOR (LORAZEPAM) [Concomitant]
     Active Substance: LORAZEPAM
     Indication: SLEEP DISORDER
     Dosage: UNK, QD
  5. XANAX [Concomitant]
     Active Substance: ALPRAZOLAM
     Indication: DEPRESSION
     Dosage: 8 GTT, UNK
  6. GLATIRAMER ACETATE. [Suspect]
     Active Substance: GLATIRAMER ACETATE
     Indication: MULTIPLE SCLEROSIS
     Dosage: 40 MG, 3/WEEK
     Route: 058
     Dates: start: 201509
  7. TRIATEC                            /00885601/ [Concomitant]
     Active Substance: RAMIPRIL
     Dosage: 5 MG, QD
     Route: 048

REACTIONS (3)
  - Drug interaction [Unknown]
  - Therapy change [Unknown]
  - Bradycardia [Unknown]
